FAERS Safety Report 7752908-7 (Version None)
Quarter: 2011Q3

REPORT INFORMATION
  Report Type: 
  Country: None (occurrence: None)
  Receive Date: 20110915
  Receipt Date: 20110907
  Transmission Date: 20111222
  Serious: Yes (Other)
  Sender: FDA-Public Use
  Company Number: US-BAYER-201034590NA

PATIENT
  Age: 34 Year
  Sex: Female
  Weight: 93.424 kg

DRUGS (5)
  1. ZANTAC [Concomitant]
  2. YASMIN [Suspect]
  3. PAXIL [Concomitant]
     Indication: DEPRESSION
  4. ORTHO TRI-CYCLEN [Concomitant]
  5. YASMIN [Suspect]
     Indication: PREMENSTRUAL SYNDROME
     Dosage: UNK
     Dates: start: 20031001, end: 20051201

REACTIONS (5)
  - CHOLELITHIASIS [None]
  - DIARRHOEA [None]
  - GALLBLADDER DISORDER [None]
  - CHOLECYSTITIS CHRONIC [None]
  - ABDOMINAL DISCOMFORT [None]
